FAERS Safety Report 21542378 (Version 2)
Quarter: 2022Q4

REPORT INFORMATION
  Report Type: Spontaneous
  Country: US (occurrence: US)
  Receive Date: 20221102
  Receipt Date: 20221128
  Transmission Date: 20230112
  Serious: No
  Sender: FDA-Public Use
  Company Number: US-Calliditas-2022CAL00426

PATIENT
  Age: 37 Year
  Sex: Female

DRUGS (5)
  1. TARPEYO [Suspect]
     Active Substance: BUDESONIDE
     Indication: Haematuria
     Dosage: 16 MG (4 MG CAPSULES) DAILY
     Route: 048
     Dates: start: 20220623
  2. FARXIGA [Concomitant]
     Active Substance: DAPAGLIFLOZIN PROPANEDIOL
     Dosage: 10MG ONCE DAILY
  3. LOSARTAN [Concomitant]
     Active Substance: LOSARTAN
     Dosage: 50MG TWICE DAILY
  4. FISH OIL [Concomitant]
     Active Substance: FISH OIL
  5. GARLIC [Concomitant]
     Active Substance: GARLIC

REACTIONS (1)
  - Back pain [Recovering/Resolving]

NARRATIVE: CASE EVENT DATE: 20220903
